FAERS Safety Report 6443282-7 (Version None)
Quarter: 2009Q4

REPORT INFORMATION
  Report Type: 
  Country: None (occurrence: None)
  Receive Date: 20091112
  Receipt Date: 20091027
  Transmission Date: 20100525
  Serious: Yes (Death)
  Sender: FDA-Public Use
  Company Number: 2009AL007044

PATIENT
  Age: 30 Year
  Sex: Male

DRUGS (4)
  1. SERTRALINE HYDROCHLORIDE  (AELLC) [Suspect]
     Indication: DEPRESSION
     Dosage: 100 MG UNK PO
     Route: 048
     Dates: start: 20081101, end: 20090301
  2. QUETIAPINE [Concomitant]
  3. MONTELUKAST SODIUM [Concomitant]
  4. ALCOHOL [Concomitant]

REACTIONS (3)
  - ALCOHOL INTERACTION [None]
  - ALCOHOL POISONING [None]
  - DRUG INTERACTION [None]
